FAERS Safety Report 6463053-5 (Version None)
Quarter: 2009Q4

REPORT INFORMATION
  Report Type: 
  Country: None (occurrence: None)
  Receive Date: 20091123
  Receipt Date: 20091110
  Transmission Date: 20100525
  Serious: Yes (Other)
  Sender: FDA-Public Use
  Company Number: 232961J09USA

PATIENT
  Age: 40 Year
  Sex: Female
  Weight: 67 kg

DRUGS (5)
  1. REBIF [Suspect]
     Indication: MULTIPLE SCLEROSIS
     Dosage: 44 MCG, 3 IN 1 WEEKS, SUBCUTANEOSU
     Route: 058
     Dates: start: 20090919, end: 20091014
  2. CYMBALTA [Concomitant]
  3. BACTROBAN [Concomitant]
  4. ASPIRIN [Concomitant]
  5. BONIVA [Concomitant]

REACTIONS (5)
  - ARTHRITIS INFECTIVE [None]
  - FURUNCLE [None]
  - IMMUNODEFICIENCY [None]
  - SCAB [None]
  - STAPHYLOCOCCAL INFECTION [None]
